FAERS Safety Report 7931577-7 (Version None)
Quarter: 2011Q4

REPORT INFORMATION
  Report Type: 
  Country: None (occurrence: None)
  Receive Date: 20111121
  Receipt Date: 20111121
  Transmission Date: 20120403
  Serious: Yes (Other)
  Sender: FDA-Public Use
  Company Number: None

PATIENT
  Age: 56 Year
  Sex: Male
  Weight: 95.254 kg

DRUGS (1)
  1. SAVELLA [Suspect]
     Indication: FIBROMYALGIA
     Dosage: 50MG
     Route: 048
     Dates: start: 20111107, end: 20111119

REACTIONS (1)
  - MUSCULOSKELETAL STIFFNESS [None]
